FAERS Safety Report 4855143-5 (Version None)
Quarter: 2005Q4

REPORT INFORMATION
  Report Type: 
  Country: None (occurrence: None)
  Receive Date: 20051214
  Receipt Date: 20051128
  Transmission Date: 20060501
  Serious: Yes (Other)
  Sender: FDA-Public Use
  Company Number: MEDI-0003890

PATIENT
  Age: 50 Year
  Sex: Female

DRUGS (7)
  1. ETHYOL [Suspect]
     Indication: CHEMOTHERAPY
     Dosage: 500 MG, 5 IN 1 WK, SUBCUTANEOUS
     Route: 058
     Dates: start: 20050927, end: 20051111
  2. ETHYOL [Suspect]
     Indication: RADIOTHERAPY
     Dosage: 500 MG, 5 IN 1 WK, SUBCUTANEOUS
     Route: 058
     Dates: start: 20050927, end: 20051111
  3. RADIATION THERAPY [Concomitant]
  4. LOTREL (AMLODIPINE, BENAZEPRIL HYDROCHLIRDE) [Concomitant]
  5. MOTRIL (IBUPROFEN) [Concomitant]
  6. CISPLATIN [Concomitant]
  7. ETOPOSIDE [Concomitant]

REACTIONS (7)
  - INJECTION SITE RASH [None]
  - POST PROCEDURAL COMPLICATION [None]
  - RADIATION INJURY [None]
  - RASH MACULAR [None]
  - SKIN DEPIGMENTATION [None]
  - SKIN EXFOLIATION [None]
  - SKIN SWELLING [None]
